FAERS Safety Report 10237805 (Version 1)
Quarter: 2014Q2

REPORT INFORMATION
  Report Type: Spontaneous
  Country: US (occurrence: None)
  Receive Date: 20140612
  Receipt Date: 20140612
  Transmission Date: 20141212
  Serious: No
  Sender: FDA-Public Use
  Company Number: None

PATIENT
  Age: 65 Year
  Sex: Male

DRUGS (12)
  1. APOKYN 10MG/ML US WORLDMEDS [Suspect]
     Indication: PARKINSON^S DISEASE
     Dosage: 0.2 TO 0.6 ML, UP TO 5X/DAY, SQ INJECTION
     Route: 058
     Dates: start: 20140524, end: 20140606
  2. EXCLON [Concomitant]
  3. STALEVO [Concomitant]
  4. PARCOPA [Concomitant]
  5. AFLUZOSIN ER [Concomitant]
  6. SIMVASTATIN [Concomitant]
  7. COMBIGAN [Concomitant]
  8. CITALOPRAM [Concomitant]
  9. UROXOTRAL [Concomitant]
  10. VOLTAREN [Concomitant]
  11. TIGAN [Concomitant]
  12. WELLBUTRIN [Concomitant]

REACTIONS (4)
  - Injection site bruising [None]
  - Injection site erythema [None]
  - Injection site pain [None]
  - Intra-abdominal haematoma [None]
